FAERS Safety Report 8883038 (Version 1)
Quarter: 2012Q4

REPORT INFORMATION
  Report Type: 
  Country: US (occurrence: US)
  Receive Date: 20121102
  Receipt Date: 20121102
  Transmission Date: 20130627
  Serious: Yes (Hospitalization)
  Sender: FDA-Public Use
  Company Number: US-ABBOTT-12P-163-0915160-00

PATIENT
  Sex: Male
  Weight: 101 kg

DRUGS (1)
  1. BIAXIN [Suspect]
     Indication: PRODUCT USED FOR UNKNOWN INDICATION
     Dates: start: 2012, end: 2012

REACTIONS (1)
  - Psychotic disorder [Not Recovered/Not Resolved]
